FAERS Safety Report 12162338 (Version 1)
Quarter: 2016Q1

REPORT INFORMATION
  Report Type: Spontaneous
  Country: US (occurrence: US)
  Receive Date: 20160309
  Receipt Date: 20160309
  Transmission Date: 20160526
  Serious: No
  Sender: FDA-Public Use
  Company Number: US-BIOGEN-2016BI00195475

PATIENT
  Age: 61 Year
  Sex: Female

DRUGS (1)
  1. TYSABRI [Suspect]
     Active Substance: NATALIZUMAB
     Indication: MULTIPLE SCLEROSIS
     Route: 042
     Dates: start: 20160218

REACTIONS (4)
  - Abasia [Recovered/Resolved]
  - Peripheral swelling [Recovered/Resolved]
  - Muscular weakness [Recovered/Resolved]
  - Motor dysfunction [Recovered/Resolved]

NARRATIVE: CASE EVENT DATE: 20160222
